FAERS Safety Report 14454193 (Version 2)
Quarter: 2022Q4

REPORT INFORMATION
  Report Type: Spontaneous
  Country: US (occurrence: US)
  Receive Date: 20180129
  Receipt Date: 20221219
  Transmission Date: 20230113
  Serious: Yes (Death, Hospitalization, Other)
  Sender: FDA-Public Use
  Company Number: US-GLAXOSMITHKLINE-US2018GSK012354

PATIENT

DRUGS (1)
  1. LAMOTRIGINE [Suspect]
     Active Substance: LAMOTRIGINE
     Indication: Febrile convulsion
     Dosage: UNK

REACTIONS (4)
  - SJS-TEN overlap [Fatal]
  - Pneumonia [Fatal]
  - Renal failure [Fatal]
  - Oral mucosal exfoliation [Fatal]
